FAERS Safety Report 19666626 (Version 1)
Quarter: 2021Q3

REPORT INFORMATION
  Report Type: Spontaneous
  Country: US (occurrence: US)
  Receive Date: 20210806
  Receipt Date: 20210806
  Transmission Date: 20211014
  Serious: Yes (Hospitalization)
  Sender: FDA-Public Use
  Company Number: None

PATIENT
  Age: 51 Year
  Sex: Male
  Weight: 111.1 kg

DRUGS (11)
  1. PREDNISONE. [Suspect]
     Active Substance: PREDNISONE
  2. LOSARTAN. [Concomitant]
     Active Substance: LOSARTAN
  3. ESCITALOPRAM [Concomitant]
     Active Substance: ESCITALOPRAM OXALATE
  4. OXYCODONE [Concomitant]
     Active Substance: OXYCODONE
  5. DOCUSATE?SENNA [Concomitant]
  6. MEN 50+ MULTIVITAMIN [Concomitant]
  7. METFORMIN [Concomitant]
     Active Substance: METFORMIN HYDROCHLORIDE
  8. ABIRATERONE. [Suspect]
     Active Substance: ABIRATERONE ACETATE
  9. ABIRATERONE. [Concomitant]
     Active Substance: ABIRATERONE ACETATE
  10. CARVEDILOL. [Concomitant]
     Active Substance: CARVEDILOL
  11. PREDNISONE. [Concomitant]
     Active Substance: PREDNISONE

REACTIONS (1)
  - Renal failure [None]

NARRATIVE: CASE EVENT DATE: 20210805
